FAERS Safety Report 21238273 (Version 5)
Quarter: 2022Q3

REPORT INFORMATION
  Report Type: Spontaneous
  Country: CA (occurrence: CA)
  Receive Date: 20220822
  Receipt Date: 20220920
  Transmission Date: 20221027
  Serious: Yes (Other)
  Sender: FDA-Public Use
  Company Number: CA-PFIZER INC-202201067959

PATIENT
  Age: 59 Year
  Sex: Female

DRUGS (5)
  1. XELJANZ [Suspect]
     Active Substance: TOFACITINIB CITRATE
     Indication: Colitis ulcerative
     Dosage: 10 MG, 2X/DAY, 10MG TWICE DAILY FOR 8 WEEKS (INDUCTION)
     Route: 048
     Dates: start: 20220608, end: 202208
  2. XELJANZ [Suspect]
     Active Substance: TOFACITINIB CITRATE
     Dosage: 5 MG, 2X/DAY
     Route: 048
     Dates: start: 202208, end: 20220831
  3. ATB [Concomitant]
     Dosage: UNK  X 14 DAYS
     Dates: start: 20220831
  4. ATB [Concomitant]
     Dosage: UNK
     Dates: start: 20220914
  5. MESALAMINE [Concomitant]
     Active Substance: MESALAMINE
     Dosage: 1 DF, DOSAGE UNKNOWN
     Route: 065

REACTIONS (4)
  - Diverticulitis [Recovered/Resolved]
  - Haematochezia [Not Recovered/Not Resolved]
  - Diverticulitis [Recovered/Resolved]
  - Disease recurrence [Recovered/Resolved]

NARRATIVE: CASE EVENT DATE: 20220101
